FAERS Safety Report 9982037 (Version 1)
Quarter: 2014Q1

REPORT INFORMATION
  Report Type: Spontaneous
  Country: US (occurrence: None)
  Receive Date: 20140306
  Receipt Date: 20140306
  Transmission Date: 20141002
  Serious: Yes (Other)
  Sender: FDA-Public Use
  Company Number: None

PATIENT
  Age: 32 Year
  Sex: Female

DRUGS (1)
  1. HUMIRA 40MG ABBVIE [Suspect]
     Indication: ANKYLOSING SPONDYLITIS
     Dosage: 40MG EVERY 14 DAYS
     Route: 058
     Dates: start: 20140127

REACTIONS (1)
  - Palpitations [None]
